FAERS Safety Report 10214711 (Version 2)
Quarter: 2014Q2

REPORT INFORMATION
  Report Type: Spontaneous
  Country: GB (occurrence: GB)
  Receive Date: 20140603
  Receipt Date: 20140603
  Transmission Date: 20141212
  Serious: Yes (Disabling)
  Sender: FDA-Public Use
  Company Number: GB-B.I. PHARMACEUTICALS,INC./RIDGEFIELD-2014-BI-17258UK

PATIENT
  Age: 71 Year
  Sex: Male
  Weight: 87 kg

DRUGS (7)
  1. TRAJENTA [Suspect]
     Indication: DIABETES MELLITUS
     Route: 048
     Dates: start: 20140127, end: 20140210
  2. ZAFIRLUKAST [Concomitant]
     Indication: ASTHMA
     Route: 048
     Dates: start: 2008
  3. GLICAZIDE [Concomitant]
     Indication: DIABETES MELLITUS
     Route: 048
     Dates: start: 2010
  4. SIMVASTATIN [Concomitant]
     Indication: DIABETES MELLITUS
     Route: 048
     Dates: start: 2007
  5. LINSINOPRIL [Concomitant]
     Indication: BLOOD PRESSURE
     Route: 048
     Dates: start: 2009
  6. LOSEC [Concomitant]
     Indication: GASTRITIS
     Route: 048
     Dates: start: 1997
  7. SYMBICORT [Concomitant]
     Indication: ASTHMA
     Route: 055
     Dates: start: 2008

REACTIONS (1)
  - Gastrointestinal pain [Recovered/Resolved]
